FAERS Safety Report 16266493 (Version 3)
Quarter: 2019Q4

REPORT INFORMATION
  Report Type: Spontaneous
  Country: US (occurrence: US)
  Receive Date: 20190502
  Receipt Date: 20191028
  Transmission Date: 20200122
  Serious: Yes (Other)
  Sender: FDA-Public Use
  Company Number: US-ASTRAZENECA-2018SF65799

PATIENT
  Age: 62 Year
  Sex: Male
  Weight: 108 kg

DRUGS (29)
  1. OXYCODONE-ACETAMINOPHEN [Concomitant]
     Active Substance: ACETAMINOPHEN\OXYCODONE HYDROCHLORIDE
  2. SINGULAIR [Concomitant]
     Active Substance: MONTELUKAST SODIUM
  3. ROZEREM [Concomitant]
     Active Substance: RAMELTEON
  4. ZYRTEC [Concomitant]
     Active Substance: CETIRIZINE HYDROCHLORIDE
  5. NEXIUM [Suspect]
     Active Substance: ESOMEPRAZOLE MAGNESIUM
     Route: 048
     Dates: start: 20070321
  6. PROAIR HFA [Concomitant]
     Active Substance: ALBUTEROL SULFATE
  7. SYMBICORT [Concomitant]
     Active Substance: BUDESONIDE\FORMOTEROL FUMARATE DIHYDRATE
  8. SPIRIVA [Concomitant]
     Active Substance: TIOTROPIUM BROMIDE MONOHYDRATE
  9. NEXIUM [Suspect]
     Active Substance: ESOMEPRAZOLE MAGNESIUM
     Route: 048
     Dates: start: 20070123
  10. FLUTICASONE. [Concomitant]
     Active Substance: FLUTICASONE
  11. ALBUTEROL SULFATE. [Concomitant]
     Active Substance: ALBUTEROL SULFATE
  12. LACTULOSE. [Concomitant]
     Active Substance: LACTULOSE
  13. MODAFINIL. [Concomitant]
     Active Substance: MODAFINIL
  14. PHENERGAN [Concomitant]
     Active Substance: PROMETHAZINE HYDROCHLORIDE
  15. ASPIRIN. [Concomitant]
     Active Substance: ASPIRIN
  16. NUCYNTA [Concomitant]
     Active Substance: TAPENTADOL HYDROCHLORIDE
  17. RIZATRIPTAN. [Concomitant]
     Active Substance: RIZATRIPTAN
  18. ATORVASTATIN [Concomitant]
     Active Substance: ATORVASTATIN
  19. DULOXETINE. [Concomitant]
     Active Substance: DULOXETINE
  20. NEXIUM [Suspect]
     Active Substance: ESOMEPRAZOLE MAGNESIUM
     Dosage: FOR VARIOUS DATES AND YEARS PRIOR TO AND/OR INCLUDING THE DATES OF PLAINTIFF^S INJURY
     Route: 048
  21. ATACAND [Concomitant]
     Active Substance: CANDESARTAN CILEXETIL
  22. CELEBREX [Concomitant]
     Active Substance: CELECOXIB
  23. MUCINEX [Concomitant]
     Active Substance: GUAIFENESIN
  24. MONTELUKAST [Concomitant]
     Active Substance: MONTELUKAST SODIUM
  25. DIAZEPAM. [Concomitant]
     Active Substance: DIAZEPAM
  26. CETRIZINE [Concomitant]
     Active Substance: CETIRIZINE HYDROCHLORIDE
  27. LUNESTA [Concomitant]
     Active Substance: ESZOPICLONE
  28. MEGESTROL [Concomitant]
     Active Substance: MEGESTROL
  29. BIPHASIC [Concomitant]

REACTIONS (4)
  - Rebound acid hypersecretion [Unknown]
  - Renal failure [Unknown]
  - Chronic kidney disease [Unknown]
  - Renal injury [Unknown]
